FAERS Safety Report 7335256-9 (Version None)
Quarter: 2011Q1

REPORT INFORMATION
  Report Type: 
  Country: None (occurrence: None)
  Receive Date: 20110307
  Receipt Date: 20110301
  Transmission Date: 20110831
  Serious: No
  Sender: FDA-Public Use
  Company Number: US-PFIZER INC-2010158613

PATIENT
  Sex: Female
  Weight: 68.9 kg

DRUGS (5)
  1. ESTRADIOL [Concomitant]
     Indication: CONTRACEPTION
     Dosage: 1 MG, UNK
     Route: 048
  2. LYRICA [Suspect]
     Indication: FIBROMYALGIA
     Dosage: 25 MG, UNK
     Route: 048
     Dates: start: 20101112
  3. MELOXICAM [Concomitant]
     Indication: SPONDYLITIS
     Dosage: 7.5 MG, UNK
     Route: 048
  4. ACYCLOVIR [Concomitant]
     Indication: HERPES VIRUS INFECTION
     Dosage: 20 MG, UNK
     Route: 048
  5. METHOCARBAMOL [Concomitant]
     Indication: OSTEOARTHRITIS
     Dosage: 500 MG, UNK
     Route: 048

REACTIONS (8)
  - DISTURBANCE IN ATTENTION [None]
  - THINKING ABNORMAL [None]
  - MALAISE [None]
  - FEELING ABNORMAL [None]
  - HYPOKINESIA [None]
  - FEELING DRUNK [None]
  - TREMOR [None]
  - BACK PAIN [None]
